FAERS Safety Report 9341738 (Version 1)
Quarter: 2013Q2

REPORT INFORMATION
  Report Type: Spontaneous
  Country: JP (occurrence: JP)
  Receive Date: 20130611
  Receipt Date: 20130611
  Transmission Date: 20140414
  Serious: Yes (Life-Threatening)
  Sender: FDA-Public Use
  Company Number: JP-009507513-1004USA04789

PATIENT
  Age: 60 Year
  Sex: Female

DRUGS (6)
  1. JANUVIA [Suspect]
     Indication: TYPE 2 DIABETES MELLITUS
     Dosage: 50 MG, QD
     Route: 048
     Dates: start: 20091225, end: 20100203
  2. DAONIL [Suspect]
     Indication: TYPE 2 DIABETES MELLITUS
     Dosage: 1.25 MG, QD, DIVIDED DOSE FREQUENCY UNKNOWN
     Route: 048
     Dates: end: 20091224
  3. DAONIL [Suspect]
     Dosage: 2.5, MG QD, DIVIDED DOSE FREQUENCY UNCERTAIN
     Route: 048
     Dates: start: 20091225, end: 20100203
  4. DAONIL [Suspect]
     Dosage: 1.25 MG, UNK
     Dates: start: 20100217
  5. GLUCOBAY [Concomitant]
     Indication: TYPE 2 DIABETES MELLITUS
     Dosage: 50 MG, TID
     Route: 048
     Dates: start: 20091225
  6. PARIET [Concomitant]
     Indication: GASTRITIS
     Dosage: 10 MG, QD DIVIDED DOSE FREQUENCY UNKNOWN
     Route: 048

REACTIONS (3)
  - Hypoglycaemia [Recovered/Resolved]
  - Nausea [Unknown]
  - Vomiting [Unknown]
